FAERS Safety Report 16480616 (Version 1)
Quarter: 2019Q2

REPORT INFORMATION
  Report Type: Spontaneous
  Country: IT (occurrence: IT)
  Receive Date: 20190626
  Receipt Date: 20190626
  Transmission Date: 20190711
  Serious: Yes (Life-Threatening, Hospitalization, Other)
  Sender: FDA-Public Use
  Company Number: IT-GLAXOSMITHKLINE-IT2019GSK113326

PATIENT
  Age: 12 Year
  Sex: Female

DRUGS (9)
  1. VANCOMYCIN [Suspect]
     Active Substance: VANCOMYCIN
     Indication: PRODUCT USED FOR UNKNOWN INDICATION
     Dosage: UNK
  2. COLCHICINE. [Interacting]
     Active Substance: COLCHICINE
     Indication: CAPILLARY LEAK SYNDROME
     Dosage: 0.5 MG, 1D
  3. COLCHICINE. [Interacting]
     Active Substance: COLCHICINE
     Dosage: 0.125 MG, 1D
  4. COLCHICINE. [Interacting]
     Active Substance: COLCHICINE
     Dosage: 1 MG, 1D
  5. ACYCLOVIR. [Suspect]
     Active Substance: ACYCLOVIR
     Indication: PRODUCT USED FOR UNKNOWN INDICATION
     Dosage: UNK
  6. AMIKACIN SULFATE. [Suspect]
     Active Substance: AMIKACIN SULFATE
     Indication: PRODUCT USED FOR UNKNOWN INDICATION
     Dosage: UNK
  7. PREDNISONE. [Concomitant]
     Active Substance: PREDNISONE
     Indication: CAPILLARY LEAK SYNDROME
  8. MYCOPHENOLATE MOFETIL. [Interacting]
     Active Substance: MYCOPHENOLATE MOFETIL
     Indication: PRODUCT USED FOR UNKNOWN INDICATION
     Dosage: 600 MG/M2, UNK
  9. CYCLOSPORIN [Concomitant]
     Active Substance: CYCLOSPORINE
     Indication: CAPILLARY LEAK SYNDROME
     Dosage: UNK

REACTIONS (6)
  - Drug interaction [Unknown]
  - Renal impairment [Recovered/Resolved]
  - Nephropathy toxic [Recovered/Resolved]
  - Capillary leak syndrome [Recovered/Resolved]
  - Leukopenia [Recovered/Resolved]
  - Acute kidney injury [Recovered/Resolved]
